FAERS Safety Report 18525284 (Version 7)
Quarter: 2021Q1

REPORT INFORMATION
  Report Type: Report from Study
  Country: CN (occurrence: CN)
  Receive Date: 20201119
  Receipt Date: 20210304
  Transmission Date: 20210419
  Serious: Yes (Hospitalization)
  Sender: FDA-Public Use
  Company Number: NVSC2020CN305418

PATIENT
  Sex: Male

DRUGS (23)
  1. CANAKINUMAB. [Suspect]
     Active Substance: CANAKINUMAB
     Indication: NON-SMALL CELL LUNG CANCER
     Dosage: UNK
     Route: 058
     Dates: start: 20191226, end: 20201022
  2. COMPARATOR CARBOPLATIN [Suspect]
     Active Substance: CARBOPLATIN
     Indication: NON-SMALL CELL LUNG CANCER
     Dosage: 550 MG, Q3W
     Route: 042
     Dates: start: 20191226, end: 20200301
  3. POTASSIUM CHLORIDE. [Concomitant]
     Active Substance: POTASSIUM CHLORIDE
     Indication: DECREASED APPETITE
     Dosage: 1 G
     Route: 065
     Dates: start: 20201208, end: 20201215
  4. DEXAMETHASONE. [Concomitant]
     Active Substance: DEXAMETHASONE
     Indication: PROPHYLAXIS
     Dosage: UNK
     Route: 065
     Dates: start: 20201021, end: 20201023
  5. FAT EMULSION NOS [Concomitant]
     Active Substance: EGG PHOSPHOLIPIDS\SAFFLOWER OIL\SOYBEAN OIL
     Indication: DECREASED APPETITE
     Dosage: UNK
     Route: 065
     Dates: start: 20201208, end: 20201215
  6. METHYLPREDNISOLONE SODIUM SUCCINATE. [Concomitant]
     Active Substance: METHYLPREDNISOLONE SODIUM SUCCINATE
     Dosage: UNK
     Route: 065
     Dates: start: 20201115, end: 20201117
  7. LYSINE ACETYLSALICYLATE [Concomitant]
     Active Substance: ASPIRIN DL-LYSINE
     Indication: PYREXIA
     Dosage: UNK
     Route: 065
     Dates: start: 20201212, end: 20201212
  8. TROPISETRON HYDROCHLORIDE [Concomitant]
     Active Substance: TROPISETRON HYDROCHLORIDE
     Indication: PROPHYLAXIS
     Dosage: UNK
     Route: 065
     Dates: start: 20201022, end: 20201022
  9. METHYLPREDNISOLONE SODIUM SUCCINATE. [Concomitant]
     Active Substance: METHYLPREDNISOLONE SODIUM SUCCINATE
     Indication: PROPHYLAXIS
     Dosage: UNK
     Route: 065
     Dates: start: 20201112, end: 20201114
  10. AMBROXOL HYDROCHLORIDE [Concomitant]
     Active Substance: AMBROXOL HYDROCHLORIDE
     Indication: PROPHYLAXIS
     Dosage: UNK
     Route: 065
     Dates: start: 20201209, end: 20201228
  11. SODIUM CHLORIDE. [Concomitant]
     Active Substance: SODIUM CHLORIDE
     Indication: HYPONATRAEMIA
     Dosage: 10 %
     Route: 065
     Dates: start: 20201208, end: 20201213
  12. CEFUROXIME. [Concomitant]
     Active Substance: CEFUROXIME
     Indication: POLYURIA
     Dosage: UNK
     Route: 065
     Dates: start: 20201213, end: 20201213
  13. COMPARATOR PEMETREXED [Suspect]
     Active Substance: PEMETREXED DISODIUM
     Indication: NON-SMALL CELL LUNG CANCER
     Dosage: 765 MG, Q3W
     Route: 042
     Dates: start: 20191226, end: 20201022
  14. DOXOFYLLINE [Concomitant]
     Active Substance: DOXOFYLLINE
     Indication: COUGH
     Dosage: UNK
     Route: 065
     Dates: start: 20201209, end: 20201228
  15. DEXAMETHASONE SODIUM PHOSPHATE. [Concomitant]
     Active Substance: DEXAMETHASONE SODIUM PHOSPHATE
     Indication: DYSPNOEA
     Dosage: UNK
     Route: 065
     Dates: start: 20201213, end: 20201228
  16. OXYCODONE [Concomitant]
     Active Substance: OXYCODONE
     Indication: PROPHYLAXIS
     Dosage: UNK
     Route: 065
     Dates: start: 20201208, end: 20201211
  17. GLUCOSE [Concomitant]
     Active Substance: DEXTROSE
     Indication: DECREASED APPETITE
     Dosage: 50 %
     Route: 065
     Dates: start: 20201208, end: 20201215
  18. COMPARATOR PEMBROLIZUMAB [Suspect]
     Active Substance: PEMBROLIZUMAB
     Indication: NON-SMALL CELL LUNG CANCER
     Dosage: 200 MG, Q3W
     Route: 042
     Dates: start: 20191226, end: 20201022
  19. PIPERACILLIN SODIUM [Concomitant]
     Active Substance: PIPERACILLIN SODIUM
     Indication: ANTIINFLAMMATORY THERAPY
     Dosage: UNK
     Route: 065
     Dates: start: 20201209, end: 20201209
  20. CENTRUM [Concomitant]
     Active Substance: VITAMINS
     Indication: PROPHYLAXIS
     Dosage: UNK
     Route: 065
     Dates: start: 20201020, end: 20201023
  21. PIPERACILLIN SODIUM [Concomitant]
     Active Substance: PIPERACILLIN SODIUM
     Dosage: UNK
     Route: 065
     Dates: start: 20201210, end: 20201228
  22. DEXAMETHASONE SODIUM PHOSPHATE. [Concomitant]
     Active Substance: DEXAMETHASONE SODIUM PHOSPHATE
     Indication: CHEST DISCOMFORT
  23. CALCIUM GLUCONATE. [Concomitant]
     Active Substance: CALCIUM GLUCONATE
     Indication: PRODUCT USED FOR UNKNOWN INDICATION
     Dosage: UNK
     Route: 065
     Dates: start: 20201213, end: 20201228

REACTIONS (1)
  - Malaise [Recovered/Resolved]

NARRATIVE: CASE EVENT DATE: 20201025
